FAERS Safety Report 9192738 (Version 1)
Quarter: 2013Q1

REPORT INFORMATION
  Report Type: Spontaneous
  Country: US (occurrence: None)
  Receive Date: 20120703
  Receipt Date: 20120703
  Transmission Date: 20140127
  Serious: No
  Sender: FDA-Public Use
  Company Number: PHEH2012US009224

PATIENT
  Age: 31 Year
  Sex: Male
  Weight: 82.1 kg

DRUGS (1)
  1. GILENYA (FTY) CAPSULE [Suspect]
     Indication: MULTIPLE SCLEROSIS
     Route: 048
     Dates: start: 20120229

REACTIONS (6)
  - Abdominal pain upper [None]
  - Pyrexia [None]
  - Nausea [None]
  - Vomiting [None]
  - Abdominal discomfort [None]
  - Viral infection [None]
